FAERS Safety Report 10200780 (Version 1)
Quarter: 2014Q2

REPORT INFORMATION
  Report Type: Spontaneous
  Country: US (occurrence: None)
  Receive Date: 20140523
  Receipt Date: 20140523
  Transmission Date: 20141212
  Serious: No
  Sender: FDA-Public Use
  Company Number: None

PATIENT
  Age: 37 Year
  Sex: Male
  Weight: 25.86 kg

DRUGS (1)
  1. METROGYL [Suspect]
     Indication: GIARDIASIS
     Route: 048
     Dates: start: 20140507, end: 20140509

REACTIONS (5)
  - Product label issue [None]
  - Mood swings [None]
  - Agitation [None]
  - Anger [None]
  - Insomnia [None]
